FAERS Safety Report 10932695 (Version 1)
Quarter: 2015Q1

REPORT INFORMATION
  Report Type: Spontaneous
  Country: US (occurrence: None)
  Receive Date: 20150319
  Receipt Date: 20150319
  Transmission Date: 20150721
  Serious: No
  Sender: FDA-Public Use
  Company Number: None

PATIENT
  Age: 44 Year
  Sex: Female

DRUGS (4)
  1. CRANBERRY VITAMIN [Concomitant]
  2. CIPRO [Suspect]
     Active Substance: CIPROFLOXACIN HYDROCHLORIDE
     Indication: URINARY TRACT INFECTION
     Dosage: 1 TAB 2 X A DAY TOTAL
     Route: 048
     Dates: start: 20150120, end: 20150124
  3. RETIN-A [Concomitant]
     Active Substance: TRETINOIN
  4. MULTIVITAMIN [Concomitant]
     Active Substance: VITAMINS

REACTIONS (2)
  - Neuropathy peripheral [None]
  - Paraesthesia [None]

NARRATIVE: CASE EVENT DATE: 20150120
